FAERS Safety Report 5900772-0 (Version None)
Quarter: 2008Q3

REPORT INFORMATION
  Report Type: 
  Country: None (occurrence: None)
  Receive Date: 20080929
  Receipt Date: 20080618
  Transmission Date: 20090109
  Serious: Yes (Disabling)
  Sender: FDA-Public Use
  Company Number: US-JNJFOC-20080605042

PATIENT
  Sex: Female

DRUGS (1)
  1. REGRANEX [Suspect]
     Indication: DIABETIC FOOT
     Route: 061

REACTIONS (4)
  - DIABETIC FOOT [None]
  - DRUG INEFFECTIVE [None]
  - LIMB INJURY [None]
  - TOE AMPUTATION [None]
